FAERS Safety Report 23553267 (Version 1)
Quarter: 2024Q1

REPORT INFORMATION
  Report Type: Spontaneous
  Country: FR (occurrence: FR)
  Receive Date: 20240222
  Receipt Date: 20240222
  Transmission Date: 20240410
  Serious: Yes (Other)
  Sender: FDA-Public Use
  Company Number: FR-ABBVIE-5650276

PATIENT
  Age: 53 Year
  Sex: Female

DRUGS (3)
  1. DEPAKOTE [Suspect]
     Active Substance: DIVALPROEX SODIUM
     Indication: Product used for unknown indication
     Dosage: 1 DF (1X)
     Route: 048
  2. PRISTINAMYCIN [Suspect]
     Active Substance: PRISTINAMYCIN
     Indication: Bronchitis
     Dosage: 1 DF
     Route: 048
     Dates: start: 20231012, end: 20231019
  3. CHOLECALCIFEROL [Concomitant]
     Active Substance: CHOLECALCIFEROL
     Indication: Product used for unknown indication

REACTIONS (1)
  - Neutropenia [Not Recovered/Not Resolved]

NARRATIVE: CASE EVENT DATE: 20231117
